FAERS Safety Report 13360358 (Version 1)
Quarter: 2017Q1

REPORT INFORMATION
  Report Type: Spontaneous
  Country: FR (occurrence: FR)
  Receive Date: 20170322
  Receipt Date: 20170322
  Transmission Date: 20170429
  Serious: Yes (Hospitalization)
  Sender: FDA-Public Use
  Company Number: FR-JNJFOC-20170318464

PATIENT
  Age: 66 Year
  Sex: Female

DRUGS (1)
  1. RISPERDAL [Suspect]
     Active Substance: RISPERIDONE
     Indication: MIXED DEMENTIA
     Dosage: 0.25 MG IN THE MORNING AND 0.5 IN THE EVENING
     Route: 048
     Dates: start: 20170127, end: 20170211

REACTIONS (5)
  - Pneumonia aspiration [Unknown]
  - Off label use [Unknown]
  - Product use issue [Unknown]
  - Hyponatraemia [Recovered/Resolved]
  - Hyponatraemic coma [Recovered/Resolved]

NARRATIVE: CASE EVENT DATE: 20170212
